FAERS Safety Report 6969510-7 (Version None)
Quarter: 2010Q3

REPORT INFORMATION
  Report Type: 
  Country: None (occurrence: None)
  Receive Date: 20100907
  Receipt Date: 20100907
  Transmission Date: 20110219
  Serious: Yes (Other)
  Sender: FDA-Public Use
  Company Number: None

PATIENT
  Age: 30 Year
  Sex: Female
  Weight: 62.5964 kg

DRUGS (1)
  1. MIRENA [Suspect]
     Indication: CONTRACEPTION
     Dates: start: 20080201, end: 20100613

REACTIONS (7)
  - ALOPECIA [None]
  - BACK PAIN [None]
  - DEPRESSION [None]
  - HAEMORRHAGE [None]
  - MIGRAINE [None]
  - MOOD SWINGS [None]
  - WEIGHT INCREASED [None]
